FAERS Safety Report 9715626 (Version 3)
Quarter: 2014Q1

REPORT INFORMATION
  Report Type: Report from Study
  Country: ZA (occurrence: ZA)
  Receive Date: 20131127
  Receipt Date: 20140204
  Transmission Date: 20141002
  Serious: Yes (Death, Life-Threatening, Hospitalization)
  Sender: FDA-Public Use
  Company Number: ZA-BRISTOL-MYERS SQUIBB COMPANY-19829944

PATIENT
  Age: 58 Year
  Sex: Female

DRUGS (4)
  1. IPILIMUMAB [Suspect]
     Indication: MALIGNANT MELANOMA
     Route: 042
     Dates: start: 20131030, end: 20131030
  2. BETANOID [Concomitant]
     Dates: start: 20131111
  3. VITAMIN C [Concomitant]
     Dates: start: 2000, end: 20131111
  4. OMEGA-3 [Concomitant]
     Dates: start: 2000, end: 20131111

REACTIONS (5)
  - Bone marrow failure [Fatal]
  - Cerebral haemorrhage [Fatal]
  - Anaemia [Unknown]
  - Thrombocytopenia [Unknown]
  - Aphasia [Not Recovered/Not Resolved]
